FAERS Safety Report 6580156-5 (Version None)
Quarter: 2010Q1

REPORT INFORMATION
  Report Type: 
  Country: None (occurrence: None)
  Receive Date: 20100212
  Receipt Date: 20091221
  Transmission Date: 20100710
  Serious: Yes (Other)
  Sender: FDA-Public Use
  Company Number: DK-SANOFI-AVENTIS-2009SA008717

PATIENT
  Age: 18 Year
  Sex: Female

DRUGS (11)
  1. FUROSEMIDE [Suspect]
     Indication: DRUG USE FOR UNKNOWN INDICATION
     Route: 042
  2. FUROSEMIDE [Suspect]
     Route: 042
  3. REMIFENTANIL [Concomitant]
  4. HUMAN ACTRAPID [Concomitant]
  5. METHYLPREDNISOLONE [Concomitant]
     Route: 042
  6. ESOMEPRAZOLE [Concomitant]
  7. ESOMEPRAZOLE [Concomitant]
  8. DALTEPARIN [Concomitant]
  9. DALTEPARIN [Concomitant]
  10. PARACETAMOL [Concomitant]
  11. MEROPENEM [Concomitant]

REACTIONS (1)
  - HYPERTHERMIA [None]
